FAERS Safety Report 23548490 (Version 1)
Quarter: 2024Q1

REPORT INFORMATION
  Report Type: Spontaneous
  Country: ES (occurrence: ES)
  Receive Date: 20240221
  Receipt Date: 20240221
  Transmission Date: 20240410
  Serious: Yes (Life-Threatening, Hospitalization)
  Sender: FDA-Public Use
  Company Number: None

PATIENT
  Age: 73 Year
  Sex: Female

DRUGS (2)
  1. ENALAPRIL [Suspect]
     Active Substance: ENALAPRIL
     Indication: Hypertension
     Dosage: 20 MILLIGRAM, QD
     Route: 048
     Dates: start: 20230920
  2. DUTASTERIDE [Suspect]
     Active Substance: DUTASTERIDE
     Indication: Bipolar disorder
     Dosage: 600 MILLIGRAM (1-0-0.5)
     Route: 048
     Dates: start: 20160121, end: 20240208

REACTIONS (5)
  - Antipsychotic drug level increased [Recovered/Resolved]
  - Encephalopathy [Recovering/Resolving]
  - Intention tremor [Recovered/Resolved]
  - Acute kidney injury [Recovering/Resolving]
  - Hyperkalaemia [Recovered/Resolved]

NARRATIVE: CASE EVENT DATE: 20240205
